FAERS Safety Report 24928506 (Version 1)
Quarter: 2025Q1

REPORT INFORMATION
  Report Type: Report from Study
  Country: US (occurrence: US)
  Receive Date: 20250205
  Receipt Date: 20250205
  Transmission Date: 20250409
  Serious: Yes (Other)
  Sender: UCB
  Company Number: US-UCBSA-2025006257

PATIENT
  Age: 76 Year
  Sex: Female

DRUGS (2)
  1. LACOSAMIDE [Suspect]
     Active Substance: LACOSAMIDE
     Indication: Seizure
     Dosage: 250 MILLIGRAM, 2X/DAY (BID) (00MG 1 TAB BID + 50MG - 1 TAB BID)
     Dates: end: 202411
  2. LACOSAMIDE [Suspect]
     Active Substance: LACOSAMIDE
     Dates: start: 2024

REACTIONS (2)
  - Lower limb fracture [Not Recovered/Not Resolved]
  - Overdose [Unknown]

NARRATIVE: CASE EVENT DATE: 20241224
